FAERS Safety Report 10064434 (Version 1)
Quarter: 2014Q2

REPORT INFORMATION
  Report Type: Spontaneous
  Country: US (occurrence: None)
  Receive Date: 20140407
  Receipt Date: 20140407
  Transmission Date: 20141212
  Serious: Yes (Disabling)
  Sender: FDA-Public Use
  Company Number: None

PATIENT
  Age: 36 Year
  Sex: Male
  Weight: 84.82 kg

DRUGS (1)
  1. CIPROFLOXACIN [Suspect]
     Dosage: 500MG 20 PILLS, TWICE DAILY, TAKEN BY MOUTH
     Route: 048
     Dates: start: 20140303, end: 20140317

REACTIONS (5)
  - Abasia [None]
  - Oedema peripheral [None]
  - Pain [None]
  - Insomnia [None]
  - Arthropathy [None]
